FAERS Safety Report 18911780 (Version 1)
Quarter: 2021Q1

REPORT INFORMATION
  Report Type: Spontaneous
  Country: US (occurrence: US)
  Receive Date: 20210218
  Receipt Date: 20210218
  Transmission Date: 20210420
  Serious: No
  Sender: FDA-Public Use
  Company Number: US-TEVA-2021-US-1880202

PATIENT
  Age: 61 Year
  Sex: Male

DRUGS (5)
  1. BUPROPION. [Concomitant]
     Active Substance: BUPROPION
  2. RASAGILINE. [Suspect]
     Active Substance: RASAGILINE
     Route: 065
     Dates: start: 2015
  3. DIPHENHYDRAMINE. [Concomitant]
     Active Substance: DIPHENHYDRAMINE
  4. PROVIGIL [Suspect]
     Active Substance: MODAFINIL
     Route: 065
  5. MIRAPEX [Concomitant]
     Active Substance: PRAMIPEXOLE DIHYDROCHLORIDE

REACTIONS (2)
  - Autonomic nervous system imbalance [Not Recovered/Not Resolved]
  - Fatigue [Not Recovered/Not Resolved]
